FAERS Safety Report 8814975 (Version 1)
Quarter: 2012Q4

REPORT INFORMATION
  Report Type: 
  Country: CA (occurrence: CA)
  Receive Date: 20120928
  Receipt Date: 20120928
  Transmission Date: 20130627
  Serious: Yes (Other)
  Sender: FDA-Public Use
  Company Number: PHHY2012CA082497

PATIENT
  Sex: Female

DRUGS (1)
  1. FEMARA [Suspect]
     Indication: BREAST CANCER
     Dosage: 2.5 mg, Daily
     Route: 048
     Dates: start: 20101101

REACTIONS (3)
  - Amnesia [Unknown]
  - Hot flush [Unknown]
  - Fatigue [Unknown]
